FAERS Safety Report 5487591-7 (Version None)
Quarter: 2007Q4

REPORT INFORMATION
  Report Type: 
  Country: None (occurrence: None)
  Receive Date: 20071016
  Receipt Date: 20071008
  Transmission Date: 20080405
  Serious: Yes (Hospitalization, Other)
  Sender: FDA-Public Use
  Company Number: US-ELI_LILLY_AND_COMPANY-US200709003871

PATIENT
  Age: 67 Year
  Sex: Male

DRUGS (5)
  1. BYETTA [Suspect]
     Indication: TYPE 2 DIABETES MELLITUS
     Dosage: 10 UG, 2/D
     Route: 058
     Dates: start: 20060501
  2. BYETTA [Suspect]
     Dosage: 5 UG, 2/D
     Route: 058
     Dates: start: 20060701
  3. AVANDIA [Concomitant]
     Dosage: 4 MG, 2/D
     Dates: start: 20020101
  4. LANTUS [Concomitant]
     Dosage: 15 U, DAILY (1/D)
  5. HUMALOG [Concomitant]
     Dosage: 12 U, 3/D
     Dates: start: 20020101

REACTIONS (4)
  - ARTERIOVENOUS MALFORMATION [None]
  - DIABETIC GASTROPARESIS [None]
  - GASTRITIS [None]
  - VARICES OESOPHAGEAL [None]
